FAERS Safety Report 6466106-0 (Version None)
Quarter: 2009Q4

REPORT INFORMATION
  Report Type: 
  Country: None (occurrence: None)
  Receive Date: 20091201
  Receipt Date: 20091201
  Transmission Date: 20100525
  Serious: Yes (Hospitalization)
  Sender: FDA-Public Use
  Company Number: None

PATIENT
  Sex: Male
  Weight: 94.8018 kg

DRUGS (2)
  1. ZOCOR [Suspect]
     Indication: BLOOD CHOLESTEROL
     Dosage: 80 MG 1 A DAY MOUTH OVER A YEAR
     Route: 048
  2. ACTOS [Suspect]
     Indication: BLOOD CHOLESTEROL
     Dosage: 15 MG 1 A DAY MOUTH
     Route: 048

REACTIONS (1)
  - RHABDOMYOLYSIS [None]
